FAERS Safety Report 7896330-1 (Version None)
Quarter: 2011Q4

REPORT INFORMATION
  Report Type: 
  Country: None (occurrence: None)
  Receive Date: 20111104
  Receipt Date: 20111104
  Transmission Date: 20120403
  Serious: Yes (Hospitalization)
  Sender: FDA-Public Use
  Company Number: None

PATIENT
  Age: 51 Year
  Sex: Female
  Weight: 60.5 kg

DRUGS (2)
  1. ARSENIC TRIOXIDE [Suspect]
     Indication: LUNG NEOPLASM MALIGNANT
     Dosage: 0.25 MG  TWICE A WEEK
     Dates: start: 20111005, end: 20111011
  2. SEE ATTACHED [Concomitant]

REACTIONS (2)
  - GAIT DISTURBANCE [None]
  - AMNESIA [None]
